FAERS Safety Report 15048143 (Version 1)
Quarter: 2018Q2

REPORT INFORMATION
  Report Type: Other
  Country: IT (occurrence: IT)
  Receive Date: 20180622
  Receipt Date: 20180622
  Transmission Date: 20180711
  Serious: Yes (Life-Threatening, Other)
  Sender: FDA-Public Use
  Company Number: IT-DENTSPLY-2018SCDP000224

PATIENT
  Age: 4 Month
  Weight: 5 kg

DRUGS (6)
  1. LIDOCAINE. [Suspect]
     Active Substance: LIDOCAINE
     Indication: ARRHYTHMIA
  2. LIDOCAINE. [Suspect]
     Active Substance: LIDOCAINE
     Indication: WOLFF-PARKINSON-WHITE SYNDROME
  3. LIDOCAINE. [Suspect]
     Active Substance: LIDOCAINE
     Indication: VENTRICULAR TACHYCARDIA
  4. LIDOCAINE. [Suspect]
     Active Substance: LIDOCAINE
     Indication: TORSADE DE POINTES
  5. LIDOCAINE. [Suspect]
     Active Substance: LIDOCAINE
     Indication: CARDIOMYOPATHY
  6. LIDOCAINE. [Suspect]
     Active Substance: LIDOCAINE
     Indication: ELECTROCARDIOGRAM QT PROLONGED
     Dosage: UNK

REACTIONS (1)
  - Drug ineffective [Unknown]
